FAERS Safety Report 6590324-4 (Version None)
Quarter: 2010Q1

REPORT INFORMATION
  Report Type: 
  Country: None (occurrence: None)
  Receive Date: 20100219
  Receipt Date: 20100216
  Transmission Date: 20100710
  Serious: Yes (Hospitalization, Other)
  Sender: FDA-Public Use
  Company Number: DE-SANOFI-AVENTIS-2010SA008930

PATIENT
  Age: 92 Year
  Sex: Female
  Weight: 79.3 kg

DRUGS (16)
  1. MULTAQ [Suspect]
     Indication: ATRIAL FIBRILLATION
     Route: 048
     Dates: start: 20100107, end: 20100112
  2. AMLODIPINE [Concomitant]
     Indication: DRUG USE FOR UNKNOWN INDICATION
     Route: 048
  3. CANDESARTAN [Concomitant]
     Indication: DRUG USE FOR UNKNOWN INDICATION
     Route: 048
     Dates: end: 20100112
  4. ALLOPURINOL [Concomitant]
     Indication: DRUG USE FOR UNKNOWN INDICATION
     Route: 048
     Dates: end: 20100111
  5. METOPROLOL SUCCINATE [Concomitant]
     Indication: DRUG USE FOR UNKNOWN INDICATION
     Dosage: DOSAGE: 1/2-0-1/2
     Route: 048
     Dates: start: 20100105, end: 20100107
  6. METOPROLOL SUCCINATE [Concomitant]
     Dosage: DOSAGE: 1/2-0-0
     Route: 048
     Dates: start: 20100108
  7. FUROSEMID [Concomitant]
     Indication: DRUG USE FOR UNKNOWN INDICATION
     Route: 048
     Dates: start: 20100105, end: 20100111
  8. CALCILAC KT [Concomitant]
     Indication: DRUG USE FOR UNKNOWN INDICATION
     Route: 048
     Dates: start: 20100101, end: 20100115
  9. KALINOR [Concomitant]
     Indication: DRUG USE FOR UNKNOWN INDICATION
     Dosage: DOSAGE: 1-0-0
     Route: 048
     Dates: start: 20100101, end: 20100106
  10. KALINOR [Concomitant]
     Dosage: DOSAGE: 1-0-1
     Route: 048
     Dates: start: 20100107, end: 20100112
  11. PANTOPRAZOLE [Concomitant]
     Indication: DRUG USE FOR UNKNOWN INDICATION
     Route: 048
     Dates: start: 20100101, end: 20100112
  12. ISOSORBIDE DINITRATE [Concomitant]
     Indication: DRUG USE FOR UNKNOWN INDICATION
     Route: 048
     Dates: start: 20100108
  13. CORVATON [Concomitant]
     Indication: DRUG USE FOR UNKNOWN INDICATION
     Route: 048
     Dates: start: 20100108
  14. ACETYLSALICYLIC ACID [Concomitant]
     Indication: DRUG USE FOR UNKNOWN INDICATION
     Dosage: DOSAGE: 0-0-5
     Route: 048
     Dates: start: 20100108, end: 20100108
  15. ACETYLSALICYLIC ACID [Concomitant]
     Route: 048
     Dates: start: 20100109
  16. CLEXANE [Concomitant]
     Indication: DRUG USE FOR UNKNOWN INDICATION
     Route: 058
     Dates: start: 20100101, end: 20100109

REACTIONS (3)
  - BLOOD CREATININE INCREASED [None]
  - GLOMERULAR FILTRATION RATE DECREASED [None]
  - RENAL FAILURE ACUTE [None]
